FAERS Safety Report 7819951-0 (Version None)
Quarter: 2011Q4

REPORT INFORMATION
  Report Type: 
  Country: None (occurrence: None)
  Receive Date: 20111018
  Receipt Date: 20110126
  Transmission Date: 20120403
  Serious: No
  Sender: FDA-Public Use
  Company Number: US-ASTRAZENECA-2011SE04365

PATIENT
  Age: 50 Year
  Sex: Female

DRUGS (1)
  1. SYMBICORT [Suspect]
     Indication: DYSPNOEA
     Dosage: 160 4.5 MCG TWO
     Route: 055
     Dates: start: 20110125

REACTIONS (5)
  - HYPERVENTILATION [None]
  - FATIGUE [None]
  - NIGHTMARE [None]
  - PALPITATIONS [None]
  - HEADACHE [None]
